FAERS Safety Report 9791619 (Version 1)
Quarter: 2014Q1

REPORT INFORMATION
  Report Type: Spontaneous
  Country: DK (occurrence: DK)
  Receive Date: 20140102
  Receipt Date: 20140102
  Transmission Date: 20141002
  Serious: Yes (Other)
  Sender: FDA-Public Use
  Company Number: DK-ROCHE-1324543

PATIENT
  Age: 61 Year
  Sex: Male
  Weight: 76 kg

DRUGS (3)
  1. ROACTEMRA [Suspect]
     Indication: RHEUMATOID ARTHRITIS
     Route: 065
     Dates: start: 20111128
  2. METHOTREXATE [Concomitant]
     Route: 048
     Dates: start: 20101202
  3. PREDNISOLON [Concomitant]
     Route: 065
     Dates: start: 20101202

REACTIONS (2)
  - Rectal cancer [Unknown]
  - Metastases to liver [Unknown]
